FAERS Safety Report 10386695 (Version 2)
Quarter: 2014Q3

REPORT INFORMATION
  Report Type: Spontaneous
  Country: US (occurrence: US)
  Receive Date: 20140815
  Receipt Date: 20140822
  Transmission Date: 20150326
  Serious: Yes (Death, Hospitalization)
  Sender: FDA-Public Use
  Company Number: US-INCYTE CORPORATION-2014IN002282

PATIENT
  Age: 81 Year
  Sex: Male
  Weight: 78.46 kg

DRUGS (6)
  1. FLOMAX [Concomitant]
     Active Substance: TAMSULOSIN HYDROCHLORIDE
  2. FUROSEMIDE. [Concomitant]
     Active Substance: FUROSEMIDE
  3. JAKAFI [Suspect]
     Active Substance: RUXOLITINIB
     Indication: MYELOFIBROSIS
     Dosage: 10 MG, BID
     Route: 048
     Dates: start: 20130912
  4. COUMADIN [Concomitant]
     Active Substance: WARFARIN SODIUM
  5. FOLIC ACID. [Concomitant]
     Active Substance: FOLIC ACID
  6. CIPRO                              /00697201/ [Concomitant]
     Active Substance: CIPROFLOXACIN

REACTIONS (2)
  - Death [Fatal]
  - Blood potassium increased [Recovering/Resolving]

NARRATIVE: CASE EVENT DATE: 201408
